FAERS Safety Report 9943013 (Version 2)
Quarter: 2014Q2

REPORT INFORMATION
  Report Type: Spontaneous
  Country: US (occurrence: US)
  Receive Date: 20140303
  Receipt Date: 20140602
  Transmission Date: 20141212
  Serious: Yes (Death, Hospitalization, Disabling)
  Sender: FDA-Public Use
  Company Number: US-B.I. PHARMACEUTICALS,INC./RIDGEFIELD-2014-BI-08183BP

PATIENT
  Age: 61 Year
  Sex: Female
  Weight: 48.53 kg

DRUGS (10)
  1. AFATINIB [Suspect]
     Indication: LUNG NEOPLASM MALIGNANT
     Route: 065
     Dates: start: 20131015, end: 20131118
  2. AFATINIB [Suspect]
     Route: 065
     Dates: start: 20131121, end: 20131129
  3. DECADRON [Concomitant]
     Route: 065
  4. ZOFRAN [Concomitant]
     Route: 065
  5. LOVENOX [Concomitant]
     Route: 065
  6. SENNA-S [Concomitant]
     Route: 065
  7. DURAGESIC [Concomitant]
     Route: 065
  8. PAXIL [Concomitant]
     Route: 065
  9. ATIVAN [Concomitant]
     Route: 065
  10. RITALIN [Concomitant]
     Route: 065

REACTIONS (5)
  - Death [Fatal]
  - Mental status changes [Recovered/Resolved with Sequelae]
  - Abdominal pain [Unknown]
  - Diarrhoea [Unknown]
  - Fatigue [Unknown]
